FAERS Safety Report 14782711 (Version 2)
Quarter: 2018Q2

REPORT INFORMATION
  Report Type: Spontaneous
  Country: US (occurrence: US)
  Receive Date: 20180420
  Receipt Date: 20180504
  Transmission Date: 20180711
  Serious: No
  Sender: FDA-Public Use
  Company Number: US-BAYER-2018-076281

PATIENT
  Age: 55 Year
  Sex: Female

DRUGS (1)
  1. MIRALAX [Suspect]
     Active Substance: POLYETHYLENE GLYCOL 3350
     Indication: COLONOSCOPY
     Dosage: UNK
     Route: 048

REACTIONS (4)
  - Incorrect dose administered [None]
  - Off label use [Unknown]
  - Product use in unapproved indication [None]
  - Product prescribing issue [Unknown]

NARRATIVE: CASE EVENT DATE: 201804
